FAERS Safety Report 15227285 (Version 1)
Quarter: 2018Q3

REPORT INFORMATION
  Report Type: Spontaneous
  Country: US (occurrence: US)
  Receive Date: 20180706
  Receipt Date: 20180706
  Transmission Date: 20181010
  Serious: Yes (Hospitalization)
  Sender: FDA-Public Use
  Company Number: None

PATIENT
  Age: 11 Year
  Sex: Male
  Weight: 30.2 kg

DRUGS (2)
  1. CYTARABINE. [Suspect]
     Active Substance: CYTARABINE
     Dates: end: 20140726
  2. ETOPOSIDE (VP?16) [Suspect]
     Active Substance: ETOPOSIDE
     Dates: end: 20140726

REACTIONS (6)
  - Neutropenia [None]
  - Pyrexia [None]
  - Cough [None]
  - Klebsiella test positive [None]
  - Dysuria [None]
  - Blood culture positive [None]

NARRATIVE: CASE EVENT DATE: 20140801
